FAERS Safety Report 6865207-2 (Version None)
Quarter: 2010Q3

REPORT INFORMATION
  Report Type: 
  Country: None (occurrence: None)
  Receive Date: 20100721
  Receipt Date: 20080604
  Transmission Date: 20110219
  Serious: No
  Sender: FDA-Public Use
  Company Number: US-PFIZER INC-2008032316

PATIENT
  Sex: Female
  Weight: 85.73 kg

DRUGS (2)
  1. CHANTIX [Suspect]
     Indication: SMOKING CESSATION THERAPY
     Route: 048
     Dates: start: 20070703
  2. SYNTHROID [Concomitant]

REACTIONS (4)
  - BLOOD THYROID STIMULATING HORMONE ABNORMAL [None]
  - EATING DISORDER [None]
  - MALAISE [None]
  - NAUSEA [None]
